FAERS Safety Report 8583486-0 (Version None)
Quarter: 2012Q3

REPORT INFORMATION
  Report Type: 
  Country: None (occurrence: None)
  Receive Date: 20120809
  Receipt Date: 20120731
  Transmission Date: 20120928
  Serious: Yes (Other)
  Sender: FDA-Public Use
  Company Number: US-ABBOTT-12P-163-0936384-00

PATIENT
  Age: 79 Year
  Sex: Female

DRUGS (11)
  1. LEVOTHYROXINE SODIUM [Concomitant]
     Indication: PRODUCT USED FOR UNKNOWN INDICATION
  2. ZYFLAMEND [Concomitant]
     Indication: PRODUCT USED FOR UNKNOWN INDICATION
  3. GABAPENTIN [Concomitant]
     Indication: PRODUCT USED FOR UNKNOWN INDICATION
     Dosage: AT BEDTIME
  4. HUMIRA [Suspect]
  5. OMEGA COMPLEX [Concomitant]
     Indication: PRODUCT USED FOR UNKNOWN INDICATION
  6. HUMIRA [Suspect]
     Indication: PSORIASIS
     Dates: start: 20120401, end: 20120401
  7. NORCO [Concomitant]
     Indication: PRODUCT USED FOR UNKNOWN INDICATION
  8. TURMERIC [Concomitant]
     Indication: PRODUCT USED FOR UNKNOWN INDICATION
  9. ATARAX [Concomitant]
     Indication: PRURITUS
  10. TRIAMTERENE AND HYDROCHLOROTHIAZIDE [Concomitant]
     Indication: HYPERTENSION
     Dosage: 37.5-25 MG
  11. ALOE VERA [Concomitant]
     Indication: SUPPLEMENTATION THERAPY

REACTIONS (3)
  - PRURITUS GENERALISED [None]
  - BENIGN LYMPH NODE NEOPLASM [None]
  - OEDEMA PERIPHERAL [None]
